FAERS Safety Report 5448165-7 (Version None)
Quarter: 2007Q3

REPORT INFORMATION
  Report Type: 
  Country: None (occurrence: None)
  Receive Date: 20070905
  Receipt Date: 20070822
  Transmission Date: 20080115
  Serious: Yes (Other)
  Sender: FDA-Public Use
  Company Number: 100#08#2007-03232

PATIENT
  Age: 61 Year
  Sex: Male

DRUGS (2)
  1. DOXAZOSIN (DOXAZOSIN) (DOXAZOSIN) [Suspect]
     Indication: DRUG USE FOR UNKNOWN INDICATION
  2. BENDROFLUAZIDE (BENDROFLUMETHIAZIDE) [Suspect]
     Indication: DRUG USE FOR UNKNOWN INDICATION

REACTIONS (5)
  - ATRIAL FLUTTER [None]
  - ATRIOVENTRICULAR BLOCK [None]
  - LOSS OF CONSCIOUSNESS [None]
  - PALPITATIONS [None]
  - SYNCOPE [None]
